FAERS Safety Report 5126175-7 (Version None)
Quarter: 2006Q3

REPORT INFORMATION
  Report Type: 
  Country: None (occurrence: None)
  Receive Date: 20060823
  Receipt Date: 20060110
  Transmission Date: 20061208
  Serious: Yes (Hospitalization, Other)
  Sender: FDA-Public Use
  Company Number: 2006006652

PATIENT
  Sex: Female

DRUGS (2)
  1. NORVASC [Suspect]
     Indication: ILL-DEFINED DISORDER
  2. DIOVAN [Suspect]
     Indication: HYPERTENSION
     Dosage: 320 MG (1 IN  1 D)
     Dates: start: 20051206

REACTIONS (4)
  - DIZZINESS [None]
  - HEADACHE [None]
  - NAUSEA [None]
  - TACHYCARDIA [None]
